FAERS Safety Report 7249861-1 (Version None)
Quarter: 2011Q1

REPORT INFORMATION
  Report Type: 
  Country: None (occurrence: None)
  Receive Date: 20110128
  Receipt Date: 20100624
  Transmission Date: 20110831
  Serious: No
  Sender: FDA-Public Use
  Company Number: A0866940A

PATIENT
  Age: 42 Year
  Sex: Male

DRUGS (3)
  1. WELLBUTRIN XL [Suspect]
     Indication: STRESS
     Route: 048
     Dates: start: 20100101
  2. NO CONCURRENT MEDICATION [Concomitant]
  3. WELLBUTRIN SR [Suspect]
     Indication: STRESS
     Route: 048
     Dates: start: 20100301

REACTIONS (1)
  - ERECTILE DYSFUNCTION [None]
